FAERS Safety Report 7311431-4 (Version None)
Quarter: 2011Q1

REPORT INFORMATION
  Report Type: 
  Country: None (occurrence: None)
  Receive Date: 20110224
  Receipt Date: 20110209
  Transmission Date: 20110831
  Serious: Yes (Death)
  Sender: FDA-Public Use
  Company Number: US-TYCO HEALTHCARE/MALLINCKRODT-T201100359

PATIENT
  Age: 60 Year
  Sex: Female

DRUGS (2)
  1. FENTANYL-100 [Suspect]
     Dosage: UNK
     Route: 048
  2. HYDROCODONE/ACETAMINOPHEN [Suspect]
     Route: 048

REACTIONS (2)
  - COMPLETED SUICIDE [None]
  - CARDIO-RESPIRATORY ARREST [None]
